FAERS Safety Report 5013086-0 (Version None)
Quarter: 2006Q2

REPORT INFORMATION
  Report Type: 
  Country: None (occurrence: None)
  Receive Date: 20060530
  Receipt Date: 20060220
  Transmission Date: 20061013
  Serious: No
  Sender: FDA-Public Use
  Company Number: US-GLAXOSMITHKLINE-A0594423A

PATIENT
  Age: 38 Year
  Sex: Male

DRUGS (3)
  1. WELLBUTRIN XL [Suspect]
     Indication: DEPRESSION
     Dosage: 150MG PER DAY
     Route: 048
     Dates: start: 20060201
  2. AMBIEN [Concomitant]
  3. Z-PACK [Concomitant]

REACTIONS (6)
  - CHEST DISCOMFORT [None]
  - DIZZINESS [None]
  - DYSPNOEA [None]
  - EYE IRRITATION [None]
  - MUSCULOSKELETAL STIFFNESS [None]
  - TINNITUS [None]
